FAERS Safety Report 24915991 (Version 1)
Quarter: 2025Q1

REPORT INFORMATION
  Report Type: Report from Study
  Country: AT (occurrence: AT)
  Receive Date: 20250203
  Receipt Date: 20250203
  Transmission Date: 20250408
  Serious: Yes (Hospitalization)
  Sender: ACCORD
  Company Number: None

PATIENT
  Sex: Female
  Weight: 73 kg

DRUGS (2)
  1. METHOTREXATE [Suspect]
     Active Substance: METHOTREXATE
     Indication: Rheumatoid arthritis
     Dates: start: 20091210
  2. ENBREL [Suspect]
     Active Substance: ETANERCEPT
     Indication: Rheumatoid arthritis
     Dosage: 25 MG/2X/WEEK
     Dates: start: 20101011

REACTIONS (1)
  - Back pain [Recovered/Resolved]

NARRATIVE: CASE EVENT DATE: 20240401
